FAERS Safety Report 8447706-5 (Version None)
Quarter: 2012Q2

REPORT INFORMATION
  Report Type: 
  Country: None (occurrence: None)
  Receive Date: 20120619
  Receipt Date: 20120612
  Transmission Date: 20120825
  Serious: Yes (Other)
  Sender: FDA-Public Use
  Company Number: BR-PFIZER INC-2012142027

PATIENT
  Age: 83 Year
  Sex: Female

DRUGS (8)
  1. LYRICA [Suspect]
     Indication: NEUROPATHY PERIPHERAL
     Dosage: 75 MG, 2X/DAY
     Route: 048
     Dates: start: 20120301
  2. INSULIN [Concomitant]
     Indication: DIABETES MELLITUS
     Dosage: 30 UNITS IN THE MORNING AND 15/20 AT NIGHT
     Dates: start: 20110101
  3. LOSARTAN [Concomitant]
     Indication: HYPERTENSION
     Dosage: 1 DF, 1X/DAY
  4. NIFEDIPINE [Concomitant]
     Indication: HYPERTENSION
     Dosage: 1 DF, 1X/DAY
  5. VITAMIN E [Concomitant]
     Dosage: UNK
     Dates: start: 20100101
  6. VITAMIN D [Concomitant]
     Dosage: UNK
     Dates: start: 20100101
  7. GINKO BILOBA [Concomitant]
     Indication: MEMORY IMPAIRMENT
     Dosage: 2 DF, 1X/DAY
  8. RISEDRONATE SODIUM [Concomitant]
     Indication: BONE DISORDER
     Dosage: ONCE WEEKLY

REACTIONS (3)
  - PNEUMONITIS [None]
  - NASOPHARYNGITIS [None]
  - COUGH [None]
